FAERS Safety Report 9395047 (Version 3)
Quarter: 2014Q2

REPORT INFORMATION
  Report Type: Spontaneous
  Country: US (occurrence: US)
  Receive Date: 20130711
  Receipt Date: 20140512
  Transmission Date: 20141212
  Serious: Yes (Other)
  Sender: FDA-Public Use
  Company Number: US-PFIZER INC-2013202840

PATIENT
  Age: 77 Year
  Sex: Female
  Weight: 70.75 kg

DRUGS (6)
  1. CADUET [Suspect]
     Indication: HYPERTENSION
     Dosage: 2.5/10 MG, 1X/DAY
     Route: 048
     Dates: start: 20120728
  2. CADUET [Suspect]
     Indication: BLOOD CHOLESTEROL INCREASED
     Dosage: 5/10MG, 1X/DAY
     Route: 048
  3. DICYCLOMINE [Concomitant]
     Indication: IRRITABLE BOWEL SYNDROME
     Dosage: UNK, AS NEEDED
  4. VITAMIN C [Concomitant]
     Dosage: UNK, 1X/DAY
  5. FISH OIL [Concomitant]
     Dosage: UNK
  6. CALCIUM [Concomitant]
     Dosage: UNK

REACTIONS (4)
  - Sepsis [Unknown]
  - Blood pressure inadequately controlled [Unknown]
  - Herpes zoster [Recovered/Resolved]
  - Malaise [Unknown]
